FAERS Safety Report 15595486 (Version 1)
Quarter: 2018Q4

REPORT INFORMATION
  Report Type: Report from Study
  Country: US (occurrence: US)
  Receive Date: 20181107
  Receipt Date: 20181107
  Transmission Date: 20190205
  Serious: No
  Sender: FDA-Public Use
  Company Number: PHEH2018US046153

PATIENT
  Sex: Female

DRUGS (1)
  1. COSENTYX [Suspect]
     Active Substance: SECUKINUMAB
     Indication: PSORIASIS
     Route: 058
     Dates: start: 20181008

REACTIONS (5)
  - Cough [Unknown]
  - Pyrexia [Unknown]
  - Malaise [Unknown]
  - Rhinorrhoea [Unknown]
  - Hypersensitivity [Unknown]
